FAERS Safety Report 16281412 (Version 1)
Quarter: 2019Q2

REPORT INFORMATION
  Report Type: Spontaneous
  Country: US (occurrence: US)
  Receive Date: 20190507
  Receipt Date: 20190507
  Transmission Date: 20190711
  Serious: No
  Sender: FDA-Public Use
  Company Number: US-PFIZER INC-2019187054

PATIENT
  Age: 14 Year
  Sex: Female
  Weight: 44.91 kg

DRUGS (1)
  1. ADVIL [Suspect]
     Active Substance: IBUPROFEN
     Indication: DYSMENORRHOEA
     Dosage: 2 TABLETS

REACTIONS (1)
  - Drug ineffective [Not Recovered/Not Resolved]
